FAERS Safety Report 7557132-9 (Version None)
Quarter: 2011Q2

REPORT INFORMATION
  Report Type: 
  Country: None (occurrence: None)
  Receive Date: 20110620
  Receipt Date: 20110615
  Transmission Date: 20111010
  Serious: Yes (Hospitalization, Other)
  Sender: FDA-Public Use
  Company Number: JP-PFIZER INC-2011120277

PATIENT
  Age: 80 Year
  Sex: Male

DRUGS (10)
  1. LYRICA [Suspect]
     Dosage: 225 MG, 2X/DAY
     Route: 048
     Dates: start: 20110514, end: 20110524
  2. LYRICA [Suspect]
     Indication: PAIN
     Dosage: 75 MG, 2X/DAY
     Route: 048
     Dates: start: 20110423, end: 20110426
  3. LYRICA [Suspect]
     Dosage: 150 MG, 2X/DAY
     Route: 048
     Dates: start: 20110525, end: 20110529
  4. NYSTATIN [Concomitant]
     Indication: METASTASES TO BONE
     Dosage: 80 MG, 1X/DAY
     Route: 048
     Dates: start: 20110203
  5. LYRICA [Suspect]
     Indication: HYPOAESTHESIA
     Dosage: 150 MG, 2X/DAY
     Route: 048
     Dates: start: 20110427, end: 20110513
  6. LYRICA [Suspect]
     Dosage: 75 MG, 2X/DAY
     Route: 048
     Dates: start: 20110530
  7. SENNA [Concomitant]
     Indication: CONSTIPATION
     Dosage: 0.5 G, 3X/DAY
     Route: 048
     Dates: start: 20110108
  8. MAGMITT [Concomitant]
     Indication: CONSTIPATION
     Dosage: 330 MG, 3X/DAY
     Route: 048
     Dates: start: 20110108
  9. AMLODIPINE BESILATE [Concomitant]
     Indication: HYPERTENSION
     Dosage: 5 MG, 1X/DAY
     Route: 048
     Dates: start: 20110108
  10. LEUPROLIDE ACETATE [Concomitant]
     Dosage: 1 DF, EVERY 3 MONTHS
     Route: 058
     Dates: start: 20110203

REACTIONS (2)
  - PNEUMONIA ASPIRATION [None]
  - GLOSSOPTOSIS [None]
